FAERS Safety Report 14603737 (Version 1)
Quarter: 2018Q1

REPORT INFORMATION
  Report Type: Spontaneous
  Country: US (occurrence: US)
  Receive Date: 20180305
  Receipt Date: 20180305
  Transmission Date: 20180509
  Serious: No
  Sender: FDA-Public Use
  Company Number: None

PATIENT
  Age: 66 Year
  Sex: Male

DRUGS (1)
  1. METOPROOL ER [Suspect]
     Active Substance: METOPROLOL
     Indication: BLOOD PRESSURE MEASUREMENT
     Route: 048
     Dates: start: 20180131, end: 20180301

REACTIONS (3)
  - Product substitution issue [None]
  - Blood pressure increased [None]
  - Dizziness [None]

NARRATIVE: CASE EVENT DATE: 20180301
